FAERS Safety Report 19510687 (Version 3)
Quarter: 2021Q3

REPORT INFORMATION
  Report Type: Spontaneous
  Country: US (occurrence: US)
  Receive Date: 20210709
  Receipt Date: 20210819
  Transmission Date: 20211014
  Serious: Yes (Death, Hospitalization, Other)
  Sender: FDA-Public Use
  Company Number: US-009507513-2107USA000723

PATIENT
  Age: 33 Year
  Sex: Male
  Weight: 103 kg

DRUGS (5)
  1. ZERBAXA [Suspect]
     Active Substance: CEFTOLOZANE SULFATE\TAZOBACTAM SODIUM
     Indication: FEBRILE NEUTROPENIA
     Dosage: 4 DOSES, DOSE 1.5, Q8H
     Dates: start: 20210629, end: 20210630
  2. LINEZOLID. [Concomitant]
     Active Substance: LINEZOLID
     Dosage: UNK
     Dates: start: 20210627
  3. ISAVUCONAZOLE [Concomitant]
     Active Substance: ISAVUCONAZOLE
     Dosage: UNK
     Dates: start: 20210629
  4. FLAGYL [Concomitant]
     Active Substance: METRONIDAZOLE\METRONIDAZOLE HYDROCHLORIDE
     Dosage: UNK
     Dates: start: 20210617
  5. ZERBAXA [Suspect]
     Active Substance: CEFTOLOZANE SULFATE\TAZOBACTAM SODIUM
     Indication: SEPSIS

REACTIONS (15)
  - Drug ineffective [Unknown]
  - Product storage error [Unknown]
  - Adverse event [Recovered/Resolved]
  - Product dispensing error [Unknown]
  - Abdominal pain [Recovering/Resolving]
  - Poor quality product administered [Unknown]
  - Intestinal congestion [Unknown]
  - Product prescribing error [Unknown]
  - Death [Fatal]
  - Mucosal disorder [Unknown]
  - Recalled product administered [Unknown]
  - Product contamination microbial [Unknown]
  - Respiratory acidosis [Recovered/Resolved]
  - Metabolic acidosis [Recovered/Resolved]
  - Gastrointestinal mucosa hyperaemia [Unknown]

NARRATIVE: CASE EVENT DATE: 2021
